FAERS Safety Report 7763061-8 (Version None)
Quarter: 2011Q3

REPORT INFORMATION
  Report Type: 
  Country: None (occurrence: None)
  Receive Date: 20110920
  Receipt Date: 20110908
  Transmission Date: 20111222
  Serious: Yes (Hospitalization)
  Sender: FDA-Public Use
  Company Number: US-PFIZER INC-2011211289

PATIENT
  Sex: Female

DRUGS (1)
  1. PRISTIQ [Suspect]
     Dosage: 50 MG, DAILY
     Route: 048
     Dates: start: 20110831, end: 20110101

REACTIONS (5)
  - BALANCE DISORDER [None]
  - ABDOMINAL PAIN UPPER [None]
  - DIZZINESS [None]
  - DISORIENTATION [None]
  - DYSPNOEA [None]
